FAERS Safety Report 12196749 (Version 1)
Quarter: 2016Q1

REPORT INFORMATION
  Report Type: Report from Study
  Country: US (occurrence: US)
  Receive Date: 20160321
  Receipt Date: 20160321
  Transmission Date: 20160526
  Serious: Yes (Hospitalization)
  Sender: FDA-Public Use
  Company Number: US-ACTELION-A-US2015-115279

PATIENT
  Age: 68 Year
  Sex: Female

DRUGS (3)
  1. TRACLEER [Suspect]
     Active Substance: BOSENTAN
     Indication: PULMONARY ARTERIAL HYPERTENSION
     Dosage: UNK UNK, UNK
     Route: 048
  2. OXYGEN. [Concomitant]
     Active Substance: OXYGEN
     Dosage: 2 L/MIN, UNK
  3. SILDENAFIL. [Concomitant]
     Active Substance: SILDENAFIL

REACTIONS (9)
  - Bacterial infection [Unknown]
  - Pneumonia [Unknown]
  - Chest discomfort [Unknown]
  - Influenza [Unknown]
  - Dyspnoea [Unknown]
  - Fall [Unknown]
  - Fluid retention [Unknown]
  - Confusional state [Unknown]
  - Head injury [Unknown]
